FAERS Safety Report 11938887 (Version 1)
Quarter: 2016Q1

REPORT INFORMATION
  Report Type: Spontaneous
  Country: JP (occurrence: JP)
  Receive Date: 20160122
  Receipt Date: 20160122
  Transmission Date: 20160526
  Serious: Yes (Death, Hospitalization)
  Sender: FDA-Public Use
  Company Number: JP-SA-2016SA012737

PATIENT
  Age: 60 Year
  Sex: Male

DRUGS (4)
  1. ACETYLSALICYLIC ACID/LANSOPRAZOLE [Concomitant]
  2. AMLODIPINE BESILATE/IRBESARTAN [Concomitant]
  3. BISOPROLOL FUMARATE. [Concomitant]
     Active Substance: BISOPROLOL FUMARATE
  4. INDAPAMIDE. [Suspect]
     Active Substance: INDAPAMIDE
     Indication: HYPERTENSION
     Route: 065

REACTIONS (17)
  - Erythema [Fatal]
  - Liver disorder [Fatal]
  - Blood creatinine increased [Fatal]
  - Oral mucosa erosion [Fatal]
  - Mucous membrane disorder [Fatal]
  - White blood cell count increased [Fatal]
  - Toxic epidermal necrolysis [Fatal]
  - Pyrexia [Fatal]
  - Eye pruritus [Fatal]
  - Skin lesion [Fatal]
  - Multiple organ dysfunction syndrome [Fatal]
  - Renal disorder [Fatal]
  - C-reactive protein increased [Fatal]
  - Alanine aminotransferase increased [Fatal]
  - Corneal erosion [Fatal]
  - Aspartate aminotransferase increased [Fatal]
  - Blood urea increased [Fatal]
